FAERS Safety Report 15736353 (Version 2)
Quarter: 2019Q2

REPORT INFORMATION
  Report Type: Spontaneous
  Country: PT (occurrence: PT)
  Receive Date: 20181218
  Receipt Date: 20190604
  Transmission Date: 20190711
  Serious: Yes (Death, Disabling, Other)
  Sender: FDA-Public Use
  Company Number: PT-PFM-2018-14637

PATIENT

DRUGS (5)
  1. TARCEVA [Suspect]
     Active Substance: ERLOTINIB HYDROCHLORIDE
     Dosage: 150 MG, QD (1/DAY)
     Route: 048
     Dates: start: 20110804, end: 201109
  2. TARCEVA [Suspect]
     Active Substance: ERLOTINIB HYDROCHLORIDE
     Indication: LUNG ADENOCARCINOMA
     Dosage: 50 MG, QD (1/DAY)
     Route: 048
     Dates: start: 20130806, end: 201610
  3. CARBOPLATIN. [Suspect]
     Active Substance: CARBOPLATIN
     Indication: LUNG ADENOCARCINOMA
     Dosage: UNK
     Route: 042
     Dates: start: 20100518, end: 20100804
  4. TARCEVA [Suspect]
     Active Substance: ERLOTINIB HYDROCHLORIDE
     Dosage: 100 MG, QD (1/DAY)
     Route: 048
     Dates: start: 201109, end: 201308
  5. VINORELBINE [Suspect]
     Active Substance: VINORELBINE\VINORELBINE TARTRATE
     Dosage: DAY 1 AND DAY 8
     Route: 042
     Dates: start: 20100518, end: 20100804

REACTIONS (9)
  - Fall [Unknown]
  - Acne [Recovered/Resolved]
  - Decreased appetite [Recovering/Resolving]
  - Death [Fatal]
  - Vomiting [Recovered/Resolved]
  - Respiratory tract infection [Unknown]
  - Diarrhoea [Recovered/Resolved]
  - Asthenia [Recovered/Resolved]
  - Dementia [Not Recovered/Not Resolved]

NARRATIVE: CASE EVENT DATE: 201109
